FAERS Safety Report 12422348 (Version 1)
Quarter: 2016Q2

REPORT INFORMATION
  Report Type: Spontaneous
  Country: GB (occurrence: GB)
  Receive Date: 20160601
  Receipt Date: 20160601
  Transmission Date: 20160815
  Serious: Yes (Hospitalization)
  Sender: FDA-Public Use
  Company Number: GB-009507513-1605GBR013758

PATIENT
  Age: 92 Year
  Sex: Female

DRUGS (14)
  1. NUTRITIONAL SUPPLEMENTS [Concomitant]
     Active Substance: DIETARY SUPPLEMENT
     Dosage: COMPLAN DRINK MIX.
  2. ACETAMINOPHEN. [Concomitant]
     Active Substance: ACETAMINOPHEN
  3. ADCAL-D3 [Concomitant]
     Active Substance: CALCIUM CARBONATE\CHOLECALCIFEROL
  4. CALCIUM ALGINATE [Concomitant]
     Active Substance: CALCIUM ALGINATE
     Dosage: ALGINATE RAFT FORMING ORAL LIQUID.
     Route: 048
  5. GLYCERYL TRINITRATE [Concomitant]
     Active Substance: NITROGLYCERIN
  6. ALENDRONATE SODIUM. [Suspect]
     Active Substance: ALENDRONATE SODIUM
     Indication: HIP FRACTURE
     Dosage: 70 MG, BID
     Route: 048
  7. CLOPIDOGREL [Concomitant]
     Active Substance: CLOPIDOGREL BISULFATE
     Dosage: UNK
  8. MOVICOL [Concomitant]
     Active Substance: POLYETHYLENE GLYCOL 3350\POTASSIUM CHLORIDE\SODIUM BICARBONATE\SODIUM CHLORIDE
  9. CARBOMER [Concomitant]
     Active Substance: CARBOMER
     Dosage: 980
     Route: 050
  10. NITROFURANTOIN. [Concomitant]
     Active Substance: NITROFURANTOIN
  11. TRAVOPROST [Concomitant]
     Active Substance: TRAVOPROST
  12. LORAZEPAM. [Concomitant]
     Active Substance: LORAZEPAM
  13. FERROUS SULFATE. [Concomitant]
     Active Substance: FERROUS SULFATE
  14. OMEPRAZOLE. [Concomitant]
     Active Substance: OMEPRAZOLE

REACTIONS (6)
  - Malaise [Unknown]
  - Abdominal pain [Recovered/Resolved with Sequelae]
  - Dysphagia [Unknown]
  - Tracheo-oesophageal fistula [Unknown]
  - Oesophagitis [Recovered/Resolved with Sequelae]
  - Pyrexia [Unknown]
